FAERS Safety Report 8788266 (Version 2)
Quarter: 2015Q2

REPORT INFORMATION
  Report Type: Report from Study
  Country: US (occurrence: US)
  Receive Date: 20120915
  Receipt Date: 20150401
  Transmission Date: 20150821
  Serious: Yes (Death, Life-Threatening)
  Sender: FDA-Public Use
  Company Number: US-ROCHE-1127863

PATIENT
  Age: 50 Year
  Sex: Female

DRUGS (9)
  1. AVASTIN [Suspect]
     Active Substance: BEVACIZUMAB
     Indication: BREAST CANCER
     Dosage: DAY 1,8,15
     Route: 042
     Dates: start: 20070111
  2. ZOFRAN [Concomitant]
     Active Substance: ONDANSETRON HYDROCHLORIDE
     Route: 042
  3. ZOMETA [Concomitant]
     Active Substance: ZOLEDRONIC ACID
     Route: 042
  4. NEULASTA [Concomitant]
     Active Substance: PEGFILGRASTIM
     Route: 058
  5. ABRAXANE [Concomitant]
     Active Substance: PACLITAXEL
     Dosage: DAY 1,8,15
     Route: 065
  6. ARANESP [Concomitant]
     Active Substance: DARBEPOETIN ALFA
     Route: 058
  7. AVASTIN [Suspect]
     Active Substance: BEVACIZUMAB
     Dosage: DAY 1 AND 15
     Route: 042
  8. AVASTIN [Suspect]
     Active Substance: BEVACIZUMAB
     Indication: METASTASES TO LIVER
     Route: 042
  9. NAVELBINE [Concomitant]
     Active Substance: VINORELBINE TARTRATE
     Route: 042

REACTIONS (11)
  - Skin hyperpigmentation [Recovered/Resolved]
  - Off label use [Unknown]
  - Fatigue [Unknown]
  - Weight decreased [Unknown]
  - Hypophagia [Unknown]
  - Neutropenia [Unknown]
  - Death [Fatal]
  - Localised infection [Unknown]
  - Disease progression [Unknown]
  - Skin burning sensation [Recovered/Resolved]
  - Anaemia [Unknown]

NARRATIVE: CASE EVENT DATE: 200901
